FAERS Safety Report 8155342 (Version 8)
Quarter: 2016Q4

REPORT INFORMATION
  Report Type: Report from Study
  Country: DE (occurrence: DE)
  Receive Date: 20110926
  Receipt Date: 20161216
  Transmission Date: 20170207
  Serious: Yes (Hospitalization)
  Sender: FDA-Public Use
  Company Number: DE-JNJFOC-20110907411

PATIENT
  Age: 10 Year
  Sex: Male
  Weight: 33 kg

DRUGS (7)
  1. SALMETEROL [Concomitant]
     Active Substance: SALMETEROL
  2. AZATHIOPRINE. [Concomitant]
     Active Substance: AZATHIOPRINE
  3. FLUTICASONE [Concomitant]
     Active Substance: FLUTICASONE\FLUTICASONE PROPIONATE
  4. RIMEXOLONE [Concomitant]
     Active Substance: RIMEXOLONE
  5. DESLORATADINE. [Concomitant]
     Active Substance: DESLORATADINE
  6. VIANI FORTE [Concomitant]
     Active Substance: FLUTICASONE PROPIONATE\SALMETEROL XINAFOATE
  7. REMICADE [Suspect]
     Active Substance: INFLIXIMAB
     Indication: CROHN^S DISEASE
     Route: 042
     Dates: start: 20080320, end: 20110722

REACTIONS (1)
  - Encopresis [Recovered/Resolved]

NARRATIVE: CASE EVENT DATE: 20110524
